FAERS Safety Report 18493592 (Version 2)
Quarter: 2020Q4

REPORT INFORMATION
  Report Type: Report from Study
  Country: US (occurrence: US)
  Receive Date: 20201112
  Receipt Date: 20201216
  Transmission Date: 20210114
  Serious: Yes (Other)
  Sender: FDA-Public Use
  Company Number: US-ROCHE-2708771

PATIENT
  Age: 71 Year
  Sex: Male
  Weight: 103 kg

DRUGS (6)
  1. OBINUTUZUMAB. [Suspect]
     Active Substance: OBINUTUZUMAB
     Dosage: 1000 MG IV ON C1D8 + C1D15, C2- 6D1
     Route: 042
  2. IBRUTINIB [Suspect]
     Active Substance: IBRUTINIB
     Indication: CHRONIC LYMPHOCYTIC LEUKAEMIA
     Dosage: TOTAL DOSE ADMINISTERED THIS COURSE: 7000 MG, LAST ADMINISTERED DATE: 23/APR/2020,?DOSE REDUCED
     Route: 048
     Dates: end: 20200423
  3. OBINUTUZUMAB. [Suspect]
     Active Substance: OBINUTUZUMAB
     Indication: CHRONIC LYMPHOCYTIC LEUKAEMIA
     Dosage: 100 MG IV ON C1D1,
     Route: 042
     Dates: start: 20200414
  4. OBINUTUZUMAB. [Suspect]
     Active Substance: OBINUTUZUMAB
     Dosage: 900 MG IV ON C1D2,
     Route: 042
  5. IBRUTINIB [Suspect]
     Active Substance: IBRUTINIB
     Dosage: 420 MG PO QD FOR 15 CYCLES
     Route: 048
     Dates: start: 20200414
  6. OBINUTUZUMAB. [Suspect]
     Active Substance: OBINUTUZUMAB
     Dosage: TOTAL DOSE ADMINISTERED THIS COURSE: 3000 MG , LAST ADMINISTERED DATE: 21/APR/2020
     Route: 042

REACTIONS (2)
  - Rash maculo-papular [Recovered/Resolved]
  - Pruritus [Recovered/Resolved]

NARRATIVE: CASE EVENT DATE: 20200423
